FAERS Safety Report 7601947-5 (Version None)
Quarter: 2011Q3

REPORT INFORMATION
  Report Type: 
  Country: None (occurrence: None)
  Receive Date: 20110711
  Receipt Date: 20110125
  Transmission Date: 20111222
  Serious: Yes (Other)
  Sender: FDA-Public Use
  Company Number: US-BAYER-200934804NA

PATIENT
  Age: 51 Year
  Sex: Male
  Weight: 78.231 kg

DRUGS (30)
  1. HEPARIN [Concomitant]
     Dosage: 10 ML, UNK
     Route: 042
     Dates: start: 20050824, end: 20050824
  2. INSULIN [Concomitant]
     Dosage: 15 U, UNK
     Route: 042
     Dates: start: 20050824, end: 20050824
  3. PANCURONIUM [Concomitant]
     Dosage: 12 MG, UNK
     Route: 042
     Dates: start: 20050824, end: 20050824
  4. ALBUMIN (HUMAN) [Concomitant]
     Dosage: 50 PUMP PRIME
     Route: 042
     Dates: start: 20050824, end: 20050824
  5. EPINEPHRINE [Concomitant]
     Dosage: UNK
     Route: 042
     Dates: start: 20050824, end: 20050824
  6. NITROGLYCERIN [Concomitant]
     Dosage: UNK
     Route: 042
     Dates: start: 20050824, end: 20050824
  7. LEVOPHED [Concomitant]
     Dosage: UNK
     Route: 042
     Dates: start: 20050824, end: 20050824
  8. MOTRIN [Concomitant]
     Dosage: UNK
     Route: 048
  9. ZOCOR [Concomitant]
     Dosage: 20 MG, UNK
     Route: 048
  10. TRASYLOL [Suspect]
     Indication: CORONARY ARTERY BYPASS
     Dosage: 1 ML, 200 ML IN PUMP PRIME (LOADING DOSE), 50 CC/HR
     Route: 042
     Dates: start: 20050824, end: 20050824
  11. VERSED [Concomitant]
     Dosage: 5 MG, UNK
     Route: 042
     Dates: start: 20050824, end: 20050824
  12. VANCOMYCIN [Concomitant]
     Dosage: 2 G, UNK
     Route: 042
     Dates: start: 20050824, end: 20050824
  13. ACETYLSALICYLIC ACID SRT [Concomitant]
     Dosage: 81 MG, QD
     Route: 048
  14. SUCCINYLCHOLINE CHLORIDE [Concomitant]
     Dosage: UNK
     Route: 042
     Dates: start: 20050824, end: 20050824
  15. MILRINONE [Concomitant]
     Dosage: UNK
     Route: 042
     Dates: start: 20050824, end: 20050824
  16. PROTAMINE SULFATE [Concomitant]
     Dosage: 300 MG, UNK
     Route: 042
     Dates: start: 20050824, end: 20050824
  17. PHENOBARBITAL TAB [Concomitant]
     Dosage: 15 MG, UNK
     Route: 048
  18. DILANTIN [Concomitant]
     Dosage: 100 MG, UNK
     Route: 048
  19. ERY-TAB [Concomitant]
     Dosage: 333 MG, TID
     Route: 048
  20. HEPARIN [Concomitant]
     Dosage: 5000 U, UNK
     Route: 042
     Dates: start: 20050824, end: 20050824
  21. NITROGLYCERIN [Concomitant]
     Dosage: 0.4 MG, UNK
     Route: 048
  22. IBUPROFEN [Concomitant]
     Dosage: 800 MG, UNK
     Route: 048
  23. PHENOBARBITAL [Concomitant]
     Dosage: 3 TABLETS/BEDTIME
     Route: 048
  24. LIDOCAINE [Concomitant]
     Dosage: 100 MG, UNK
     Route: 042
     Dates: start: 20050824, end: 20050824
  25. EPHEDRINE [Concomitant]
     Dosage: 25 MG, UNK
     Route: 042
     Dates: start: 20050824, end: 20050824
  26. NPH INSULIN [Concomitant]
     Dosage: UNK
     Route: 058
  27. HEPARIN [Concomitant]
     Dosage: 30,000 UNITS
     Route: 042
     Dates: start: 20050824, end: 20050824
  28. HYDROCHLOROTHIAZIDE [Concomitant]
     Dosage: 12.5 MG, UNK
     Route: 048
  29. PLAVIX [Concomitant]
     Dosage: 75 MG, UNK
     Route: 048
  30. HYDROCODONE BITARTRATE [Concomitant]
     Route: 048

REACTIONS (13)
  - MULTI-ORGAN FAILURE [None]
  - FEAR OF DEATH [None]
  - RENAL INJURY [None]
  - EMOTIONAL DISTRESS [None]
  - FEAR [None]
  - INJURY [None]
  - NERVOUSNESS [None]
  - DEPRESSION [None]
  - ANXIETY [None]
  - PAIN [None]
  - RENAL FAILURE ACUTE [None]
  - RENAL FAILURE [None]
  - ANHEDONIA [None]
